FAERS Safety Report 5531346-1 (Version None)
Quarter: 2007Q4

REPORT INFORMATION
  Report Type: 
  Country: None (occurrence: None)
  Receive Date: 20071128
  Receipt Date: 20071114
  Transmission Date: 20080405
  Serious: Yes (Hospitalization, Disabling)
  Sender: FDA-Public Use
  Company Number: 110919ISR

PATIENT
  Age: 57 Year
  Sex: Female

DRUGS (1)
  1. GLATIRAMER ACETATE [Suspect]
     Indication: RELAPSING-REMITTING MULTIPLE SCLEROSIS
     Dosage: 20 MG, SUBCUTANEOUS
     Route: 058
     Dates: start: 20010220, end: 20051115

REACTIONS (14)
  - ARTHRALGIA [None]
  - DRUG HYPERSENSITIVITY [None]
  - DRY MOUTH [None]
  - HEARING IMPAIRED [None]
  - LARYNGOSPASM [None]
  - MUCOSAL DRYNESS [None]
  - NERVOUS SYSTEM DISORDER [None]
  - PLEURAL EFFUSION [None]
  - PULMONARY FIBROSIS [None]
  - SENSE OF OPPRESSION [None]
  - SJOGREN'S SYNDROME [None]
  - SYNCOPE [None]
  - URTICARIA [None]
  - VISION BLURRED [None]
